FAERS Safety Report 22038962 (Version 1)
Quarter: 2023Q1

REPORT INFORMATION
  Report Type: Spontaneous
  Country: US (occurrence: US)
  Receive Date: 20230227
  Receipt Date: 20230227
  Transmission Date: 20230418
  Serious: No
  Sender: FDA-Public Use
  Company Number: US-IGSA-BIG0020557

PATIENT
  Age: 59 Year
  Sex: Female
  Weight: 43.991 kg

DRUGS (13)
  1. PROLASTIN-C LIQUID [Suspect]
     Active Substance: .ALPHA.1-PROTEINASE INHIBITOR HUMAN
     Indication: Alpha-1 antitrypsin deficiency
     Dosage: 2640 MILLIGRAM, Q.WK.
     Route: 042
     Dates: start: 20220926
  2. TRELEGY ELLIPTA [Concomitant]
     Active Substance: FLUTICASONE FUROATE\UMECLIDINIUM BROMIDE\VILANTEROL TRIFENATATE
  3. BASAGLAR [Concomitant]
     Active Substance: INSULIN GLARGINE
  4. METFORMIN HYDROCHLORIDE [Concomitant]
     Active Substance: METFORMIN HYDROCHLORIDE
  5. ALBUTEROL SULFATE [Concomitant]
     Active Substance: ALBUTEROL SULFATE
     Dosage: UNK
  6. PROAIR HFA [Concomitant]
     Active Substance: ALBUTEROL SULFATE
     Dosage: UNK
  7. NAPROXEN [Concomitant]
     Active Substance: NAPROXEN
  8. DALIRESP [Concomitant]
     Active Substance: ROFLUMILAST
  9. FAMOTIDINE [Concomitant]
     Active Substance: FAMOTIDINE
  10. MONTELUKAST [Concomitant]
     Active Substance: MONTELUKAST SODIUM
  11. ATORVASTATIN CALCIUM [Concomitant]
     Active Substance: ATORVASTATIN CALCIUM
  12. LISINOPRIL [Concomitant]
     Active Substance: LISINOPRIL
  13. FLUTICASONE FUROATE\SALMETEROL XINAFOATE [Concomitant]
     Active Substance: FLUTICASONE FUROATE\SALMETEROL XINAFOATE

REACTIONS (2)
  - Swollen tongue [Recovering/Resolving]
  - Pharyngeal swelling [Unknown]

NARRATIVE: CASE EVENT DATE: 20220926
